FAERS Safety Report 13089891 (Version 1)
Quarter: 2017Q1

REPORT INFORMATION
  Report Type: Spontaneous
  Country: RU (occurrence: RU)
  Receive Date: 20170105
  Receipt Date: 20170105
  Transmission Date: 20170428
  Serious: Yes (Death)
  Sender: FDA-Public Use
  Company Number: RU-CELGENEUS-RUS-2016127338

PATIENT
  Age: 69 Year
  Sex: Female
  Weight: 51 kg

DRUGS (3)
  1. POMALIDOMIDE [Suspect]
     Active Substance: POMALIDOMIDE
     Indication: PLASMA CELL MYELOMA
     Dosage: 4MG
     Route: 048
     Dates: start: 20160301, end: 20160725
  2. CLEXANE [Concomitant]
     Active Substance: ENOXAPARIN SODIUM
     Indication: THROMBOSIS PROPHYLAXIS
     Route: 058
     Dates: start: 20160301, end: 20160725
  3. DEXAMETHASONE ORAL [Suspect]
     Active Substance: DEXAMETHASONE
     Indication: PLASMA CELL MYELOMA
     Dosage: NOT PROVIDED
     Route: 048
     Dates: start: 20160301, end: 20160725

REACTIONS (1)
  - Death [Fatal]

NARRATIVE: CASE EVENT DATE: 20160725
